FAERS Safety Report 6477971-5 (Version None)
Quarter: 2009Q4

REPORT INFORMATION
  Report Type: 
  Country: None (occurrence: None)
  Receive Date: 20091207
  Receipt Date: 20091126
  Transmission Date: 20100525
  Serious: Yes (Death, Hospitalization)
  Sender: FDA-Public Use
  Company Number: B0595373A

PATIENT
  Sex: Male
  Weight: 80 kg

DRUGS (3)
  1. PAZOPANIB [Suspect]
     Indication: COLORECTAL CANCER METASTATIC
     Dosage: 400MG PER DAY
     Route: 048
     Dates: start: 20090807, end: 20090924
  2. IRINOTECAN HCL [Suspect]
     Indication: COLORECTAL CANCER METASTATIC
     Dosage: 150MGM2 CYCLIC
     Route: 042
     Dates: start: 20090806
  3. CETUXIMAB [Suspect]
     Indication: COLORECTAL CANCER METASTATIC
     Dosage: 250MGM2 CYCLIC
     Route: 042
     Dates: start: 20090910

REACTIONS (6)
  - ANAL FISTULA [None]
  - CELLULITIS [None]
  - DEPRESSED LEVEL OF CONSCIOUSNESS [None]
  - GANGRENE [None]
  - GENERAL PHYSICAL HEALTH DETERIORATION [None]
  - SCIATICA [None]
